FAERS Safety Report 20992359 (Version 1)
Quarter: 2022Q2

REPORT INFORMATION
  Report Type: Spontaneous
  Country: US (occurrence: None)
  Receive Date: 20220621
  Receipt Date: 20220621
  Transmission Date: 20220721
  Serious: No
  Sender: FDA-Public Use
  Company Number: None

PATIENT
  Age: 79 Year
  Sex: Male

DRUGS (1)
  1. ABIRATERONE [Suspect]
     Active Substance: ABIRATERONE
     Dosage: 250MG DAILY ORAL?
     Route: 048

REACTIONS (8)
  - Muscle spasms [None]
  - Hypertension [None]
  - Prostatic specific antigen decreased [None]
  - Asthenia [None]
  - Gait inability [None]
  - Movement disorder [None]
  - Musculoskeletal stiffness [None]
  - Fatigue [None]

NARRATIVE: CASE EVENT DATE: 20220621
